FAERS Safety Report 14242517 (Version 1)
Quarter: 2017Q4

REPORT INFORMATION
  Report Type: Report from Study
  Country: GB (occurrence: GB)
  Receive Date: 20171201
  Receipt Date: 20171201
  Transmission Date: 20180321
  Serious: Yes (Other)
  Sender: FDA-Public Use
  Company Number: PHHY2017GB175819

PATIENT
  Age: 62 Year
  Sex: Male

DRUGS (1)
  1. COSENTYX [Suspect]
     Active Substance: SECUKINUMAB
     Indication: PSORIATIC ARTHROPATHY
     Dosage: 300 MG, QMO (PEN)
     Route: 065
     Dates: start: 201710

REACTIONS (2)
  - Inappropriate schedule of drug administration [Unknown]
  - Tongue discolouration [Unknown]

NARRATIVE: CASE EVENT DATE: 201710
